FAERS Safety Report 6595526-9 (Version None)
Quarter: 2010Q1

REPORT INFORMATION
  Report Type: 
  Country: None (occurrence: None)
  Receive Date: 20100223
  Receipt Date: 20100217
  Transmission Date: 20100710
  Serious: Yes (Hospitalization)
  Sender: FDA-Public Use
  Company Number: JP-EISAI INC.-E2090-01003-SPO-JP

PATIENT
  Age: 48 Year
  Sex: Male

DRUGS (1)
  1. EXCEGRAN [Suspect]
     Dosage: UNKNOWN
     Route: 048
     Dates: start: 20090501, end: 20090512

REACTIONS (1)
  - TOXIC EPIDERMAL NECROLYSIS [None]
